FAERS Safety Report 5123331-9 (Version None)
Quarter: 2006Q4

REPORT INFORMATION
  Report Type: 
  Country: None (occurrence: None)
  Receive Date: 20061005
  Receipt Date: 20060927
  Transmission Date: 20070319
  Serious: Yes (Death)
  Sender: FDA-Public Use
  Company Number: FRWYE946418SEP06

PATIENT
  Age: 45 Year
  Sex: Male

DRUGS (2)
  1. PIPERACILLIN AND TAZOBACTAM [Suspect]
     Indication: STENOTROPHOMONAS SEPSIS
     Dosage: 4 G 2X PER 1 DAY
     Route: 042
     Dates: start: 20060911
  2. CIPROFLOXACIN [Suspect]
     Indication: STENOTROPHOMONAS SEPSIS
     Route: 042
     Dates: start: 20060911, end: 20060915

REACTIONS (7)
  - AGNOSIA [None]
  - BLINDNESS [None]
  - COGNITIVE DISORDER [None]
  - DELUSION [None]
  - NYSTAGMUS [None]
  - SPEECH DISORDER [None]
  - VISUAL FIELD DEFECT [None]
